FAERS Safety Report 8504147 (Version 3)
Quarter: 2012Q4

REPORT INFORMATION
  Report Type: 
  Country: US (occurrence: US)
  Receive Date: 20120411
  Receipt Date: 20120921
  Transmission Date: 20130627
  Serious: No
  Sender: FDA-Public Use
  Company Number: US-PFIZER INC-2012087015

PATIENT
  Age: 58 Year
  Sex: Male
  Weight: 100 kg

DRUGS (2)
  1. LYRICA [Suspect]
     Indication: NEUROPATHY PERIPHERAL
     Dosage: 100 mg, 6x/day
     Route: 048
     Dates: end: 201209
  2. ULORIC [Concomitant]
     Indication: GOUT
     Dosage: UNK

REACTIONS (2)
  - Limb discomfort [Unknown]
  - Pain [Not Recovered/Not Resolved]
